FAERS Safety Report 4619921-X (Version None)
Quarter: 2005Q1

REPORT INFORMATION
  Report Type: 
  Country: None (occurrence: None)
  Receive Date: 20050324
  Receipt Date: 20050315
  Transmission Date: 20050727
  Serious: Yes (Hospitalization, Other)
  Sender: FDA-Public Use
  Company Number: 200112200BVD

PATIENT
  Age: 48 Year
  Sex: Male

DRUGS (2)
  1. AVELOX [Suspect]
     Indication: SINOBRONCHITIS
     Dosage: 400 MG, TOTAL DAILY, ORAL
     Route: 048
     Dates: start: 20001109, end: 20001114
  2. NEUROBION FORTE [Concomitant]

REACTIONS (30)
  - AGEUSIA [None]
  - ANAEMIA MEGALOBLASTIC [None]
  - ANAEMIA VITAMIN B12 DEFICIENCY [None]
  - ANOREXIA [None]
  - CANDIDIASIS [None]
  - DEPRESSED LEVEL OF CONSCIOUSNESS [None]
  - DISTURBANCE IN ATTENTION [None]
  - FEELING ABNORMAL [None]
  - GAIT DISTURBANCE [None]
  - GASTRIC DISORDER [None]
  - GASTRIC ULCER [None]
  - HAEMATEMESIS [None]
  - HEPATIC STEATOSIS [None]
  - HEPATITIS B [None]
  - HYPERHIDROSIS [None]
  - HYPOAESTHESIA [None]
  - MUSCLE CONTRACTIONS INVOLUNTARY [None]
  - MYELOPATHY [None]
  - MYELOPROLIFERATIVE DISORDER [None]
  - NEURITIS [None]
  - ORAL CANDIDIASIS [None]
  - PARAESTHESIA [None]
  - PARAPARESIS [None]
  - PERNICIOUS ANAEMIA [None]
  - POLYNEUROPATHY [None]
  - RESTLESSNESS [None]
  - SENSATION OF FOREIGN BODY [None]
  - SLEEP DISORDER [None]
  - SPINAL CORD DISORDER [None]
  - TACHYCARDIA [None]
